FAERS Safety Report 14267356 (Version 1)
Quarter: 2017Q4

REPORT INFORMATION
  Report Type: Spontaneous
  Country: US (occurrence: US)
  Receive Date: 20171208
  Receipt Date: 20171208
  Transmission Date: 20180321
  Serious: Yes (Disabling)
  Sender: FDA-Public Use
  Company Number: None

PATIENT
  Age: 70 Year
  Sex: Female
  Weight: 74.25 kg

DRUGS (6)
  1. IBUPROFEN. [Concomitant]
     Active Substance: IBUPROFEN
  2. VITAMIN D [Concomitant]
     Active Substance: CHOLECALCIFEROL
  3. CIPROFLOXACIN. [Suspect]
     Active Substance: CIPROFLOXACIN
     Indication: ESCHERICHIA URINARY TRACT INFECTION
     Dosage: ?          QUANTITY:1 TABLET(S);?
     Route: 048
  4. VITAMIN E [Concomitant]
     Active Substance: .ALPHA.-TOCOPHEROL
  5. LIQUID CALCIUM/MAGNESIUM [Concomitant]
  6. SENIOR MULTIVITAMIN [Concomitant]

REACTIONS (17)
  - Asthenia [None]
  - Ligament sprain [None]
  - Depression [None]
  - Fear [None]
  - Feeling abnormal [None]
  - Muscle strain [None]
  - Gait inability [None]
  - Malaise [None]
  - Crying [None]
  - Musculoskeletal disorder [None]
  - Nausea [None]
  - Arthralgia [None]
  - Myalgia [None]
  - Insomnia [None]
  - Muscle rupture [None]
  - Diarrhoea [None]
  - Tendonitis [None]

NARRATIVE: CASE EVENT DATE: 20170714
